FAERS Safety Report 6172294-6 (Version None)
Quarter: 2009Q2

REPORT INFORMATION
  Report Type: 
  Country: None (occurrence: None)
  Receive Date: 20090424
  Receipt Date: 20081202
  Transmission Date: 20091009
  Serious: No
  Sender: FDA-Public Use
  Company Number: ALL1-2008-03446

PATIENT
  Age: 10 Year
  Sex: Male

DRUGS (3)
  1. VYVANSE [Suspect]
     Indication: ATTENTION DEFICIT/HYPERACTIVITY DISORDER
     Dosage: 1X/DAY; QD, ORAL
     Route: 048
     Dates: start: 20080920, end: 20081001
  2. CLONIDINE [Concomitant]
  3. OXCARBAZEPINE [Concomitant]

REACTIONS (1)
  - DRUG INEFFECTIVE [None]
